FAERS Safety Report 4313923-9 (Version None)
Quarter: 2004Q1

REPORT INFORMATION
  Report Type: 
  Country: None (occurrence: None)
  Receive Date: 20040305
  Receipt Date: 20040226
  Transmission Date: 20041129
  Serious: Yes (Hospitalization)
  Sender: FDA-Public Use
  Company Number: 2004SE01032

PATIENT
  Age: 93 Year
  Sex: Female

DRUGS (6)
  1. PLENDIL [Suspect]
     Indication: HYPERTENSION
     Dosage: 5 MG DAILY PO
     Route: 048
     Dates: start: 20000101
  2. FELODIPIN GEA RETARD [Suspect]
     Indication: HYPERTENSION
     Dosage: 5 MG DAILY PO
     Route: 048
     Dates: start: 20040101, end: 20040201
  3. FUROSEMIDE RECIP [Concomitant]
  4. SELOKEN ZOC [Concomitant]
  5. OESTRIOL ^NM PHARMA^ [Concomitant]
  6. TRIOBE [Concomitant]

REACTIONS (4)
  - ANAEMIA [None]
  - DIZZINESS [None]
  - FATIGUE [None]
  - MEDICATION ERROR [None]
